FAERS Safety Report 25320620 (Version 2)
Quarter: 2025Q2

REPORT INFORMATION
  Report Type: Report from Study
  Country: US (occurrence: US)
  Receive Date: 20250515
  Receipt Date: 20250522
  Transmission Date: 20250717
  Serious: Yes (Disabling)
  Sender: MERCK SHARP & DOHME LLC
  Company Number: US-009507513-2274041

PATIENT
  Age: 68 Year
  Sex: Male

DRUGS (1)
  1. PREVYMIS [Suspect]
     Active Substance: LETERMOVIR
     Dosage: EXPIRATION DATE REPORTED AS 28-OCT-2025. STRENGTH: 480 MG
     Route: 048

REACTIONS (3)
  - Blood pressure decreased [Unknown]
  - Product use issue [Unknown]
  - Product dose omission issue [Unknown]

NARRATIVE: CASE EVENT DATE: 20250508
